FAERS Safety Report 10252642 (Version 1)
Quarter: 2014Q2

REPORT INFORMATION
  Report Type: Spontaneous
  Country: US (occurrence: US)
  Receive Date: 20140623
  Receipt Date: 20140623
  Transmission Date: 20141212
  Serious: No
  Sender: FDA-Public Use
  Company Number: US-009507513-1406USA009921

PATIENT
  Sex: Female

DRUGS (1)
  1. NEXPLANON [Suspect]
     Dosage: UNK
     Route: 059
     Dates: start: 201309

REACTIONS (6)
  - Menstruation delayed [Unknown]
  - Vaginal discharge [Unknown]
  - Back pain [Unknown]
  - Weight increased [Unknown]
  - Breast pain [Unknown]
  - Breast tenderness [Unknown]
